FAERS Safety Report 24406176 (Version 10)
Quarter: 2024Q4

REPORT INFORMATION
  Report Type: Spontaneous
  Country: DE (occurrence: DE)
  Receive Date: 20241007
  Receipt Date: 20241223
  Transmission Date: 20250114
  Serious: Yes (Life-Threatening, Other)
  Sender: PFIZER
  Company Number: DE-ROCHE-10000084302

PATIENT
  Age: 16 Year
  Sex: Male
  Weight: 74.95 kg

DRUGS (67)
  1. HYDROCORTISONE SODIUM SUCCINATE [Suspect]
     Active Substance: HYDROCORTISONE SODIUM SUCCINATE
     Indication: Non-Hodgkin^s lymphoma
     Dosage: RECENT DOSE OF PRIOR TO EVENT 02-SEP-2024
     Route: 037
     Dates: start: 20240902
  2. HYDROCORTISONE SODIUM SUCCINATE [Suspect]
     Active Substance: HYDROCORTISONE SODIUM SUCCINATE
     Dosage: 10 MG, 1X
     Dates: start: 20240902
  3. METHOTREXATE SODIUM [Suspect]
     Active Substance: METHOTREXATE SODIUM
     Indication: Non-Hodgkin^s lymphoma
     Dosage: 15 MG, 1X
     Route: 037
     Dates: start: 20240902
  4. METHOTREXATE SODIUM [Suspect]
     Active Substance: METHOTREXATE SODIUM
     Dosage: START DATE OF MOST RECENT DOSE OF STUDY DRUG PRIOR TO AE AND SAE IS 02-SEP-2024
     Dates: start: 20240902
  5. RITUXIMAB [Suspect]
     Active Substance: RITUXIMAB
     Indication: Non-Hodgkin^s lymphoma
     Dosage: 700 MG, 1X
     Dates: start: 20240902
  6. RITUXIMAB [Suspect]
     Active Substance: RITUXIMAB
     Dosage: UNK
  7. CARBOPLATIN [Suspect]
     Active Substance: CARBOPLATIN
     Indication: Non-Hodgkin^s lymphoma
     Dosage: 1120 MG, 1X
     Route: 042
     Dates: start: 20240802
  8. CARBOPLATIN [Suspect]
     Active Substance: CARBOPLATIN
     Dosage: 1180 MG
     Route: 042
     Dates: start: 20240802
  9. CARBOPLATIN [Suspect]
     Active Substance: CARBOPLATIN
     Dosage: DOSE LAST DRUG ADMIN PRIOR AE 1180 MGSTART DATE OF DRUG PRIOR TO AE AND SAE ON 03SEP2024
     Route: 042
     Dates: start: 20240903
  10. CYTARABINE [Suspect]
     Active Substance: CYTARABINE
     Indication: Non-Hodgkin^s lymphoma
     Dosage: 30 MG, 1X
     Route: 037
     Dates: start: 20240902
  11. CYTARABINE [Suspect]
     Active Substance: CYTARABINE
     Dosage: START DATE OF MOST RECENT DOSE OF STUDY DRUGPRIOR TO AE AND SAE ON 02-SEP-2024
     Route: 037
     Dates: start: 20240902
  12. ETOPOSIDE [Suspect]
     Active Substance: ETOPOSIDE
     Indication: Non-Hodgkin^s lymphoma
     Dosage: 176 MG, 1X
     Route: 042
     Dates: start: 20240802
  13. ETOPOSIDE [Suspect]
     Active Substance: ETOPOSIDE
     Dosage: 186 MG
     Route: 042
     Dates: start: 20240802
  14. ETOPOSIDE [Suspect]
     Active Substance: ETOPOSIDE
     Dosage: DOSE LAST DRUG ADMIN PRIOR AE 186 MGSTART DATE OF DRUG PRIOR TO AE AND SAE ON 06SEP2024
     Route: 042
     Dates: start: 20240906
  15. COLUMVI [Suspect]
     Active Substance: GLOFITAMAB-GXBM
     Indication: Non-Hodgkin^s lymphoma
     Dosage: UNK
     Route: 042
  16. COLUMVI [Suspect]
     Active Substance: GLOFITAMAB-GXBM
     Dosage: 2.5 MG
     Route: 042
     Dates: start: 20240807
  17. COLUMVI [Suspect]
     Active Substance: GLOFITAMAB-GXBM
     Dosage: RECENT DOSE OF PRIOR TO EVENT 28-AUG-2024, 30MG
     Dates: start: 20240807
  18. COLUMVI [Suspect]
     Active Substance: GLOFITAMAB-GXBM
     Dosage: UNK
     Route: 042
  19. COLUMVI [Suspect]
     Active Substance: GLOFITAMAB-GXBM
     Dosage: UNK
     Route: 042
  20. COLUMVI [Suspect]
     Active Substance: GLOFITAMAB-GXBM
     Dosage: 30 MG
     Route: 042
     Dates: start: 20240828
  21. IFOSFAMIDE [Suspect]
     Active Substance: IFOSFAMIDE
     Indication: Non-Hodgkin^s lymphoma
     Dosage: 5.3 G
     Route: 042
     Dates: start: 20240802
  22. IFOSFAMIDE [Suspect]
     Active Substance: IFOSFAMIDE
     Dosage: 5.6 G
     Route: 042
     Dates: start: 20240802
  23. IFOSFAMIDE [Suspect]
     Active Substance: IFOSFAMIDE
     Dosage: START DATE OF DRUG PRIOR TO AE AND SAE ON 05SEP2024 DOSE LAST STUDY DRUG ADMIN PRIOR AE 5.6 G
     Route: 042
     Dates: start: 20240905
  24. LENOGRASTIM [Suspect]
     Active Substance: LENOGRASTIM
     Indication: Non-Hodgkin^s lymphoma
     Dosage: 300 MICROGRAM
     Route: 058
     Dates: start: 20240805
  25. LENOGRASTIM [Suspect]
     Active Substance: LENOGRASTIM
     Dosage: 300 MICROGRAM
     Route: 042
     Dates: start: 20240814
  26. MESNA [Suspect]
     Active Substance: MESNA
     Indication: Non-Hodgkin^s lymphoma
     Dosage: 5500 MG, 1X
     Route: 042
     Dates: start: 20240802
  27. MESNA [Suspect]
     Active Substance: MESNA
     Dosage: 1200 MG
     Route: 042
     Dates: start: 20240802
  28. MESNA [Suspect]
     Active Substance: MESNA
     Dosage: DOSE LAST DRUG ADMIN PRIOR AE 6000 MGSTART DATE OF DRUG PRIOR TO AE AND SAE ON 06SEP2024
     Dates: start: 20240906
  29. OBINUTUZUMAB [Suspect]
     Active Substance: OBINUTUZUMAB
     Indication: Non-Hodgkin^s lymphoma
     Dosage: DOSE LAST DRUG ADMIN PRIOR AE 900 MGSTART DATE OF DRUG PRIOR TO AE AND SAE ON 01AUG2024
     Route: 042
     Dates: start: 20240731
  30. OBINUTUZUMAB [Suspect]
     Active Substance: OBINUTUZUMAB
     Dosage: DOSE LAST DRUG ADMIN PRIOR AE 900 MGSTART DATE OFDRUG PRIOR TO AE AND SAE ON 01AUG2024
     Route: 042
     Dates: start: 20240731
  31. TOCILIZUMAB [Suspect]
     Active Substance: TOCILIZUMAB
     Indication: Non-Hodgkin^s lymphoma
     Dosage: 460 MILLIGRAM, 1X
     Route: 042
     Dates: start: 20240807
  32. TOCILIZUMAB [Suspect]
     Active Substance: TOCILIZUMAB
     Dosage: UNK
     Route: 042
     Dates: start: 20240807
  33. MABTHERA [Suspect]
     Active Substance: RITUXIMAB
     Indication: Non-Hodgkin^s lymphoma
     Dosage: START AND END DATE OF MOST RECENT DOSE OF STUDY DRUG PRIOR TO AE AND SAE ON 02-SEP-2024
     Route: 042
     Dates: start: 20240902
  34. MABTHERA [Suspect]
     Active Substance: RITUXIMAB
     Dosage: UNK
     Route: 042
  35. MABTHERA [Suspect]
     Active Substance: RITUXIMAB
     Dosage: UNK
     Route: 042
     Dates: start: 20240902
  36. MABTHERA [Suspect]
     Active Substance: RITUXIMAB
     Dosage: UNK
     Route: 042
  37. MABTHERA [Suspect]
     Active Substance: RITUXIMAB
     Dosage: UNK
     Route: 042
  38. MABTHERA [Suspect]
     Active Substance: RITUXIMAB
     Dosage: UNK
     Route: 042
  39. MABTHERA [Suspect]
     Active Substance: RITUXIMAB
     Dosage: UNK
     Route: 042
  40. METHYLPREDNISOLONE [Suspect]
     Active Substance: METHYLPREDNISOLONE
     Dosage: 120 MG
     Dates: start: 20240828, end: 20240828
  41. ACETAMINOPHEN [Concomitant]
     Active Substance: ACETAMINOPHEN
     Indication: Headache
     Dosage: 750 MILLIGRAM
     Route: 042
     Dates: start: 20240727
  42. ACETAMINOPHEN [Concomitant]
     Active Substance: ACETAMINOPHEN
     Dosage: 750 MG
     Route: 042
     Dates: start: 20240727
  43. AMPHOTERICIN B [Concomitant]
     Active Substance: AMPHOTERICIN B
     Dosage: 100 MG, TID (EVERY 8 HOURS)
     Dates: start: 20240922
  44. AMPHOTERICIN B [Concomitant]
     Active Substance: AMPHOTERICIN B
     Dosage: UNK MG
  45. AMPHOTERICIN B [Concomitant]
     Active Substance: AMPHOTERICIN B
     Dosage: FREQ:8 H;100 MILLIGRAM, TID
     Route: 048
     Dates: start: 20240922
  46. CLEMASTINE [Concomitant]
     Active Substance: CLEMASTINE
     Dosage: FREQ:{ASNECESSARY};1.6 MILLIGRAM, PRN
     Route: 042
     Dates: start: 20240828, end: 20240902
  47. CAFFEINE [Concomitant]
     Active Substance: CAFFEINE
     Indication: Headache
     Dosage: FREQ:{ASNECESSARY};200 MILLIGRAM, PRN
     Route: 048
     Dates: start: 20240727, end: 20240925
  48. PLATELETS [Concomitant]
     Active Substance: HUMAN PLATELET, ALLOGENIC
     Indication: Anaemia
     Dosage: UNK, AS NEEDED
     Route: 042
     Dates: start: 20240804
  49. PLATELETS [Concomitant]
     Active Substance: HUMAN PLATELET, ALLOGENIC
     Indication: Platelet count decreased
  50. HUMAN RED BLOOD CELL [Concomitant]
     Active Substance: HUMAN RED BLOOD CELL
     Indication: Platelet count decreased
     Dosage: UNK, AS NEEDED
     Route: 042
     Dates: start: 20240805
  51. HUMAN RED BLOOD CELL [Concomitant]
     Active Substance: HUMAN RED BLOOD CELL
     Indication: Anaemia
  52. TRANEXAMIC ACID [Concomitant]
     Active Substance: TRANEXAMIC ACID
     Indication: Epistaxis
     Dosage: UNK, AS NEEDED
     Route: 045
     Dates: start: 20240812
  53. LEVETIRACETAM [Concomitant]
     Active Substance: LEVETIRACETAM
     Indication: Encephalopathy
     Dosage: 1000 MG, BID
     Dates: start: 20240902
  54. LEVETIRACETAM [Concomitant]
     Active Substance: LEVETIRACETAM
     Dosage: 1500 MG, BID
     Dates: start: 20240903, end: 20240922
  55. LEVETIRACETAM [Concomitant]
     Active Substance: LEVETIRACETAM
     Dosage: 1500 MG
     Dates: start: 20240923, end: 20240923
  56. LEVETIRACETAM [Concomitant]
     Active Substance: LEVETIRACETAM
     Dosage: 500 MG, BID
     Dates: start: 20240805, end: 20240901
  57. LEVETIRACETAM [Concomitant]
     Active Substance: LEVETIRACETAM
     Indication: Encephalopathy
     Dosage: 1500 MG, QD
     Dates: start: 20240924
  58. MELATONIN [Concomitant]
     Active Substance: MELATONIN
     Dosage: 5 MG, QD
     Dates: start: 20240806, end: 20240913
  59. TRANEXAMSAURE EBERTH [Concomitant]
  60. ONDANSETRON [Concomitant]
     Active Substance: ONDANSETRON
     Dosage: FREQ:8 H;8 MILLIGRAM, TID
     Route: 042
     Dates: start: 20240902, end: 20240902
  61. ONDANSETRON [Concomitant]
     Active Substance: ONDANSETRON
     Dosage: FREQ:12 H;8 MILLIGRAM, BID
     Route: 042
     Dates: start: 20240903, end: 20240906
  62. ONDANSETRON [Concomitant]
     Active Substance: ONDANSETRON
     Dosage: 8 MILLIGRAM, QD
     Route: 042
     Dates: start: 20240907, end: 20240907
  63. SULFAMETHOXAZOLE\TRIMETHOPRIM [Concomitant]
     Active Substance: SULFAMETHOXAZOLE\TRIMETHOPRIM
     Dosage: 320 MILLIGRAM, BIW
     Route: 048
     Dates: start: 20240726, end: 20240913
  64. PANTOPRAZOLE [Concomitant]
     Active Substance: PANTOPRAZOLE
     Dosage: 40 MILLIGRAM, QD
     Route: 042
     Dates: start: 20240908, end: 20240915
  65. PANTOPRAZOLE [Concomitant]
     Active Substance: PANTOPRAZOLE
     Dosage: 40 MILLIGRAM, QD
     Route: 042
     Dates: start: 20240917, end: 20240923
  66. PANTOPRAZOLE [Concomitant]
     Active Substance: PANTOPRAZOLE
     Dosage: 40 MILLIGRAM, QD
     Route: 048
     Dates: start: 20240728, end: 20240907
  67. DEXAMETHASONE [Concomitant]
     Active Substance: DEXAMETHASONE
     Indication: Neoplasm malignant
     Dosage: UNK
     Dates: start: 20241001

REACTIONS (3)
  - Sepsis [Recovered/Resolved]
  - Febrile neutropenia [Not Recovered/Not Resolved]
  - Off label use [Unknown]

NARRATIVE: CASE EVENT DATE: 20240916
